FAERS Safety Report 8172047-3 (Version None)
Quarter: 2012Q1

REPORT INFORMATION
  Report Type: 
  Country: None (occurrence: None)
  Receive Date: 20120228
  Receipt Date: 20120220
  Transmission Date: 20120608
  Serious: Yes (Other)
  Sender: FDA-Public Use
  Company Number: GB-ABBOTT-12P-167-0893909-00

PATIENT
  Sex: Female

DRUGS (4)
  1. CREON [Suspect]
     Indication: PRODUCT USED FOR UNKNOWN INDICATION
     Dosage: 17 CAPSULE PER DAY SINCE BIRTH (10,000)
     Dates: start: 20060501
  2. VITAMIN E [Concomitant]
     Indication: PRODUCT USED FOR UNKNOWN INDICATION
     Dosage: 1ML ONCE DAILY SINCE BIRTH
     Route: 048
     Dates: start: 20060501
  3. VITAMIN K TAB [Concomitant]
     Indication: PRODUCT USED FOR UNKNOWN INDICATION
     Dosage: 1MG ONCE DAILY SINCE BIRTH
     Route: 048
     Dates: start: 20060501
  4. DALIVIT [Concomitant]
     Indication: PRODUCT USED FOR UNKNOWN INDICATION
     Dosage: 2ML ONCE DAILY SINCE BIRTH
     Route: 048
     Dates: start: 20060501

REACTIONS (1)
  - PROTEINURIA [None]
